FAERS Safety Report 4699617-9 (Version None)
Quarter: 2005Q2

REPORT INFORMATION
  Report Type: 
  Country: None (occurrence: None)
  Receive Date: 20050623
  Receipt Date: 20050613
  Transmission Date: 20051028
  Serious: Yes (Other)
  Sender: FDA-Public Use
  Company Number: 2005087398

PATIENT
  Age: 67 Year
  Sex: Male

DRUGS (5)
  1. PREDNISONE TAB [Suspect]
     Indication: ILL-DEFINED DISORDER
     Dosage: 10 MG,ORAL
     Route: 048
  2. DILTIAZEM [Suspect]
     Indication: ANGINA PECTORIS
     Dosage: 180 MG, ORAL
     Route: 048
     Dates: start: 19880710, end: 19880722
  3. ASPIRIN [Suspect]
     Indication: ILL-DEFINED DISORDER
     Dosage: 300 MG, ORAL
     Route: 048
     Dates: start: 19880710, end: 19880722
  4. AMIODARONE HCL [Suspect]
     Indication: ILL-DEFINED DISORDER
     Dosage: 1.2 GRAM,ORAL
     Route: 048
     Dates: start: 19880717, end: 19880722
  5. PERSANTIN [Suspect]
     Indication: ILL-DEFINED DISORDER
     Dosage: 300 MG,ORAL
     Route: 048
     Dates: start: 19880710, end: 19880722

REACTIONS (2)
  - CEREBROVASCULAR DISORDER [None]
  - HEMIPARESIS [None]
